FAERS Safety Report 7490232-0 (Version None)
Quarter: 2011Q2

REPORT INFORMATION
  Report Type: 
  Country: None (occurrence: None)
  Receive Date: 20110519
  Receipt Date: 20110505
  Transmission Date: 20111010
  Serious: Yes (Death, Hospitalization)
  Sender: FDA-Public Use
  Company Number: CA-JNJFOC-20110503542

PATIENT
  Sex: Female
  Weight: 57.8 kg

DRUGS (13)
  1. ACTONEL [Concomitant]
  2. VITAMIN B-12 [Concomitant]
  3. CALCIUM CARBONATE [Concomitant]
  4. FERROUS FUMARATE [Concomitant]
  5. VITAMIN D [Concomitant]
  6. SYNTHROID [Concomitant]
  7. IMURAN [Concomitant]
  8. SIMVASTATIN [Concomitant]
  9. PREDNISONE [Concomitant]
  10. REMICADE [Suspect]
     Indication: CROHN'S DISEASE
     Dosage: THE PATIENT HAD 6 TREATMENTS
     Route: 042
  11. REMICADE [Suspect]
     Dosage: 8 YEARS AGO RECEIVED 8 INFLIXIMAB TREATMENTS
     Route: 042
     Dates: start: 20030101
  12. ASACOL [Concomitant]
  13. PRILOSEC [Concomitant]

REACTIONS (3)
  - BACK PAIN [None]
  - NEOPLASM MALIGNANT [None]
  - HOSPITALISATION [None]
